FAERS Safety Report 4380607-0 (Version None)
Quarter: 2004Q2

REPORT INFORMATION
  Report Type: 
  Country: None (occurrence: None)
  Receive Date: 20040618
  Receipt Date: 20040515
  Transmission Date: 20050107
  Serious: Yes (Death, Life-Threatening)
  Sender: FDA-Public Use
  Company Number: PH-GLAXOSMITHKLINE-B0334970A

PATIENT
  Sex: Male

DRUGS (1)
  1. FORTUM [Suspect]
     Dosage: 1G THREE TIMES PER DAY
     Route: 042

REACTIONS (2)
  - DEATH [None]
  - PHARMACEUTICAL PRODUCT COUNTERFEIT [None]
